FAERS Safety Report 4582737-7 (Version None)
Quarter: 2005Q1

REPORT INFORMATION
  Report Type: 
  Country: None (occurrence: None)
  Receive Date: 20050126
  Receipt Date: 20040929
  Transmission Date: 20050727
  Serious: Yes (Hospitalization)
  Sender: FDA-Public Use
  Company Number: LOV-US-04-00191

PATIENT
  Age: 75 Year
  Sex: Female

DRUGS (1)
  1. ALTOPREV [Suspect]
     Dosage: 60 MG PO QD
     Route: 048

REACTIONS (1)
  - RHABDOMYOLYSIS [None]
